FAERS Safety Report 4924428-6 (Version None)
Quarter: 2006Q1

REPORT INFORMATION
  Report Type: 
  Country: None (occurrence: None)
  Receive Date: 20060227
  Receipt Date: 20060215
  Transmission Date: 20060701
  Serious: Yes (Other)
  Sender: FDA-Public Use
  Company Number: AU-ROCHE-436752

PATIENT

DRUGS (1)
  1. VALCYTE [Suspect]
     Indication: RENAL TRANSPLANT
     Route: 065

REACTIONS (2)
  - CONFUSIONAL STATE [None]
  - SUICIDAL IDEATION [None]
